FAERS Safety Report 9508286 (Version 1)
Quarter: 2013Q3

REPORT INFORMATION
  Report Type: Spontaneous
  Country: ZA (occurrence: None)
  Receive Date: 20130905
  Receipt Date: 20130905
  Transmission Date: 20140515
  Serious: Yes (Other)
  Sender: FDA-Public Use
  Company Number: FK201303767

PATIENT
  Age: 22 Year
  Sex: Male

DRUGS (3)
  1. CEPHAZOLIN [Suspect]
     Indication: PRODUCT USED FOR UNKNOWN INDICATION
  2. DIPRIVAN [Suspect]
  3. DORMICUM (NITRAZEPAM) (NITRAZEPAM) [Suspect]

REACTIONS (1)
  - Anaphylactic reaction [None]
